FAERS Safety Report 22082116 (Version 1)
Quarter: 2023Q1

REPORT INFORMATION
  Report Type: Spontaneous
  Country: NL (occurrence: NL)
  Receive Date: 20230310
  Receipt Date: 20230310
  Transmission Date: 20230417
  Serious: Yes (Other)
  Sender: FDA-Public Use
  Company Number: None

PATIENT
  Sex: Female
  Weight: 64 kg

DRUGS (3)
  1. METOCLOPRAMIDE [Suspect]
     Active Substance: METOCLOPRAMIDE
     Indication: Antiemetic supportive care
     Dosage: 30 MILLIGRAM DAILY; 1 TABLET 3 TIMES A DAY  , BRAND NAME NOT SPECIFIED
     Dates: start: 20201028
  2. DEXAMETHASONE [Suspect]
     Active Substance: DEXAMETHASONE
     Indication: Antiemetic supportive care
     Dosage: 8 MILLIGRAM DAILY; 1X PER DAY 2 PIECE  , BRAND NAME NOT SPECIFIED
     Dates: start: 20201028
  3. PFIZER-BIONTECH COVID-19 VACCINE [Suspect]
     Active Substance: TOZINAMERAN
     Indication: COVID-19 immunisation
     Dosage: VACCINATED 2X , INJVLST / BRAND NAME NOT SPECIFIED
     Dates: start: 20210624

REACTIONS (1)
  - Cataract [Not Recovered/Not Resolved]
